FAERS Safety Report 15621998 (Version 1)
Quarter: 2018Q4

REPORT INFORMATION
  Report Type: Spontaneous
  Country: US (occurrence: US)
  Receive Date: 20181113
  Receipt Date: 20181113
  Transmission Date: 20190205
  Serious: Yes (Hospitalization, Other)
  Sender: FDA-Public Use
  Company Number: None

PATIENT
  Age: 72 Year
  Sex: Female
  Weight: 99 kg

DRUGS (18)
  1. LOVENOX [Concomitant]
     Active Substance: ENOXAPARIN SODIUM
  2. OSCAL [Concomitant]
     Active Substance: CALCIUM CARBONATE
  3. FLUTICASONE PROPIONATE. [Concomitant]
     Active Substance: FLUTICASONE PROPIONATE
  4. SOTOLOL HCL [Concomitant]
  5. TRAMADOL. [Concomitant]
     Active Substance: TRAMADOL
  6. ATORVASTATIN [Concomitant]
     Active Substance: ATORVASTATIN
  7. TYLENOL [Concomitant]
     Active Substance: ACETAMINOPHEN
  8. NITROSTAT [Concomitant]
     Active Substance: NITROGLYCERIN
  9. METHIMAZOLE. [Concomitant]
     Active Substance: METHIMAZOLE
  10. BUPROPRION [Concomitant]
     Active Substance: BUPROPION
  11. ONDANSETRON [Concomitant]
     Active Substance: ONDANSETRON
  12. LOPERAMIDE [Concomitant]
     Active Substance: LOPERAMIDE
  13. OXYCODONE [Concomitant]
     Active Substance: OXYCODONE
  14. LORATADINE. [Concomitant]
     Active Substance: LORATADINE
  15. NEUPOGEN [Suspect]
     Active Substance: FILGRASTIM
     Indication: COLON CANCER
     Route: 058
     Dates: start: 20180504, end: 20181113
  16. VITAMIN D [Concomitant]
     Active Substance: CHOLECALCIFEROL
  17. AMBIEN [Concomitant]
     Active Substance: ZOLPIDEM TARTRATE
  18. HYDROCHLOROTHIAZIDE. [Concomitant]
     Active Substance: HYDROCHLOROTHIAZIDE

REACTIONS (1)
  - Blood count abnormal [None]

NARRATIVE: CASE EVENT DATE: 20181113
